FAERS Safety Report 8369320-2 (Version None)
Quarter: 2012Q1

REPORT INFORMATION
  Report Type: 
  Country: None (occurrence: None)
  Receive Date: 20120323
  Receipt Date: 20111118
  Transmission Date: 20120608
  Serious: Yes (Hospitalization)
  Sender: FDA-Public Use
  Company Number: 163-21880-11112924

PATIENT
  Age: 63 Year
  Sex: Male

DRUGS (9)
  1. DEXAMETHASONE (DEXAMETHASOE) [Concomitant]
  2. ASPIRIN [Concomitant]
  3. METOPROLOL TARTRATE [Concomitant]
  4. REVLIMID [Suspect]
     Indication: MULTIPLE MYELOMA
     Dosage: 15 MG, 1 IN 1 D, PO; 20 MG, 2 IN 1 D, PO; 5 MG, 1 IN 2 D, PO
     Route: 048
     Dates: start: 20100401
  5. REVLIMID [Suspect]
     Indication: MULTIPLE MYELOMA
     Dosage: 15 MG, 1 IN 1 D, PO; 20 MG, 2 IN 1 D, PO; 5 MG, 1 IN 2 D, PO
     Route: 048
     Dates: start: 20090401
  6. REVLIMID [Suspect]
     Indication: MULTIPLE MYELOMA
     Dosage: 15 MG, 1 IN 1 D, PO; 20 MG, 2 IN 1 D, PO; 5 MG, 1 IN 2 D, PO
     Route: 048
     Dates: start: 20081103
  7. COUMADIN [Concomitant]
  8. LIPITOR [Concomitant]
  9. RENVELA [Concomitant]

REACTIONS (2)
  - LOCALISED INFECTION [None]
  - BACK PAIN [None]
